FAERS Safety Report 7904401-6 (Version None)
Quarter: 2011Q4

REPORT INFORMATION
  Report Type: 
  Country: None (occurrence: None)
  Receive Date: 20111109
  Receipt Date: 20111103
  Transmission Date: 20120403
  Serious: Yes (Hospitalization, Other)
  Sender: FDA-Public Use
  Company Number: US-ABBOTT-11P-163-0863594-00

PATIENT
  Sex: Female
  Weight: 114.41 kg

DRUGS (8)
  1. TOVIAZ [Concomitant]
  2. HUMIRA [Suspect]
     Route: 058
  3. GLUCOPHAGE [Concomitant]
  4. HUMIRA [Suspect]
     Indication: PSORIATIC ARTHROPATHY
     Route: 058
     Dates: start: 20060901, end: 20070101
  5. ENALAPRIL MALEATE [Concomitant]
     Indication: FLUID RETENTION
     Dosage: 10/25 ONCE DAILY
  6. WELLBUTRIN [Concomitant]
     Dosage: ER
     Dates: start: 20100101
  7. TENORMIN [Concomitant]
     Indication: HYPERTENSION
  8. UNKNOWN MEDICATION [Concomitant]
     Indication: PAIN

REACTIONS (17)
  - CHEST PAIN [None]
  - HYPOVITAMINOSIS [None]
  - DIABETES MELLITUS [None]
  - DYSSTASIA [None]
  - GASTROOESOPHAGEAL REFLUX DISEASE [None]
  - INJECTION SITE PAIN [None]
  - NON-CARDIAC CHEST PAIN [None]
  - SKIN DISCOLOURATION [None]
  - FALL [None]
  - PAIN [None]
  - GALLBLADDER DISORDER [None]
  - CORONARY ARTERY OCCLUSION [None]
  - GAIT DISTURBANCE [None]
  - BLOOD CHOLESTEROL INCREASED [None]
  - HYPERTONIC BLADDER [None]
  - ARTHRALGIA [None]
  - MENOPAUSAL DEPRESSION [None]
